FAERS Safety Report 4595029-7 (Version None)
Quarter: 2005Q1

REPORT INFORMATION
  Report Type: 
  Country: None (occurrence: None)
  Receive Date: 20050223
  Receipt Date: 20050202
  Transmission Date: 20050727
  Serious: Yes (Hospitalization, Disabling)
  Sender: FDA-Public Use
  Company Number: WAES0410DEU00504

PATIENT
  Age: 66 Year
  Sex: Male

DRUGS (6)
  1. VIOXX [Suspect]
     Indication: NEOPLASM PROPHYLAXIS
     Dosage: 25 MG/DAIL, PO
     Route: 048
     Dates: start: 20040630, end: 20040930
  2. ALFUZOSIN HYDROCHLORIDE [Concomitant]
  3. ASPIRIN [Concomitant]
  4. IRBESARTAN [Concomitant]
  5. PIRETANIDE [Concomitant]
  6. VARDENAFIL DIHYDROCHLORIDE [Concomitant]

REACTIONS (2)
  - CORONARY ARTERY OCCLUSION [None]
  - MYOCARDIAL INFARCTION [None]
